FAERS Safety Report 12218322 (Version 2)
Quarter: 2016Q2

REPORT INFORMATION
  Report Type: Spontaneous
  Country: GB (occurrence: GB)
  Receive Date: 20160329
  Receipt Date: 20160405
  Transmission Date: 20160815
  Serious: Yes (Other)
  Sender: FDA-Public Use
  Company Number: GB-BAYER-2016-056094

PATIENT
  Age: 41 Year
  Sex: Female

DRUGS (3)
  1. DALTEPARIN [Interacting]
     Active Substance: DALTEPARIN
  2. ACETYLSALICYLIC ACID (} 100 MG) [Suspect]
     Active Substance: ASPIRIN
     Dosage: 150 MG, UNK
  3. MAGNESIUM SULPHATE [Concomitant]
     Active Substance: MAGNESIUM SULFATE
     Indication: THERAPEUTIC PROCEDURE

REACTIONS (9)
  - Haemorrhage in pregnancy [None]
  - Placental insufficiency [None]
  - Streptococcus test positive [None]
  - Threatened labour [None]
  - Preterm premature rupture of membranes [None]
  - Urinary tract infection [None]
  - Oligohydramnios [None]
  - Maternal exposure during pregnancy [None]
  - Labelled drug-drug interaction medication error [None]
